FAERS Safety Report 7485041-2 (Version None)
Quarter: 2011Q1

REPORT INFORMATION
  Report Type: 
  Country: None (occurrence: None)
  Receive Date: 20110310
  Receipt Date: 20091223
  Transmission Date: 20110831
  Serious: Yes (Other)
  Sender: FDA-Public Use
  Company Number: 461370

PATIENT
  Age: 75 Year
  Sex: Male

DRUGS (1)
  1. FENTANYL CITRATE [Suspect]
     Indication: PROCEDURAL PAIN
     Dosage: INTRAVENOUS
     Route: 042
     Dates: start: 20091213, end: 20091214

REACTIONS (1)
  - CARDIAC ARREST [None]
